FAERS Safety Report 19904888 (Version 1)
Quarter: 2021Q3

REPORT INFORMATION
  Report Type: Spontaneous
  Country: US (occurrence: US)
  Receive Date: 20210930
  Receipt Date: 20210930
  Transmission Date: 20211014
  Serious: Yes (Disabling)
  Sender: FDA-Public Use
  Company Number: None

PATIENT
  Age: 23 Year
  Sex: Female

DRUGS (1)
  1. HUMIRA [Suspect]
     Active Substance: ADALIMUMAB
     Indication: PSORIATIC ARTHROPATHY
     Route: 058
     Dates: start: 201912

REACTIONS (7)
  - Injection site pruritus [None]
  - Therapeutic product effect incomplete [None]
  - Arthralgia [None]
  - Product storage error [None]
  - Injection site mass [None]
  - Injection site erythema [None]
  - Joint swelling [None]

NARRATIVE: CASE EVENT DATE: 20210913
